FAERS Safety Report 19756600 (Version 1)
Quarter: 2021Q3

REPORT INFORMATION
  Report Type: Spontaneous
  Country: DE (occurrence: DE)
  Receive Date: 20210827
  Receipt Date: 20210827
  Transmission Date: 20211014
  Serious: Yes (Other)
  Sender: FDA-Public Use
  Company Number: DE-GILEAD-2021-0545576

PATIENT
  Age: 62 Year
  Sex: Female

DRUGS (2)
  1. VIREAD [Suspect]
     Active Substance: TENOFOVIR DISOPROXIL FUMARATE
     Indication: HEPATITIS B
     Dosage: UNK
     Route: 065
     Dates: start: 2016
  2. HEPCLUDEX [Suspect]
     Active Substance: BULEVIRTIDE
     Indication: HEPATITIS D
     Dosage: UNK
     Route: 065
     Dates: start: 202010

REACTIONS (2)
  - Drug ineffective [Not Recovered/Not Resolved]
  - Hepatitis B DNA increased [Not Recovered/Not Resolved]

NARRATIVE: CASE EVENT DATE: 202010
